FAERS Safety Report 5148531-3 (Version None)
Quarter: 2006Q4

REPORT INFORMATION
  Report Type: 
  Country: None (occurrence: None)
  Receive Date: 20061107
  Receipt Date: 20061027
  Transmission Date: 20070319
  Serious: No
  Sender: FDA-Public Use
  Company Number: 06H-056-0311008-00

PATIENT

DRUGS (1)
  1. BUPRENORPHINE HCL [Suspect]
     Indication: DRUG USE FOR UNKNOWN INDICATION

REACTIONS (1)
  - DRUG TOXICITY [None]
